FAERS Safety Report 9360985 (Version 1)
Quarter: 2013Q2

REPORT INFORMATION
  Report Type: Report from Study
  Country: US (occurrence: US)
  Receive Date: 20130621
  Receipt Date: 20130621
  Transmission Date: 20140414
  Serious: Yes (Hospitalization)
  Sender: FDA-Public Use
  Company Number: US-MYLANLABS-2013S1013005

PATIENT
  Age: 57 Year
  Sex: 0

DRUGS (4)
  1. WARFARIN [Suspect]
     Indication: ATRIAL FIBRILLATION
     Route: 065
  2. PROFILNINE SD [Suspect]
     Indication: CEREBRAL HAEMORRHAGE
     Dosage: 25 UNITS/KG AT 10 ML/MIN
     Route: 042
  3. VITAMIN K [Concomitant]
     Indication: CEREBRAL HAEMORRHAGE
     Dosage: OVER 15 MIN
     Route: 042
  4. HEPARIN [Concomitant]
     Indication: THROMBOSIS PROPHYLAXIS
     Dosage: ON HOSPITAL D6-9
     Route: 058

REACTIONS (2)
  - Cerebral haemorrhage [Recovering/Resolving]
  - Pulmonary embolism [Unknown]
